FAERS Safety Report 10929510 (Version 2)
Quarter: 2015Q2

REPORT INFORMATION
  Report Type: Spontaneous
  Country: US (occurrence: US)
  Receive Date: 20150319
  Receipt Date: 20150501
  Transmission Date: 20150821
  Serious: No
  Sender: FDA-Public Use
  Company Number: US-SHIRE-US201502409

PATIENT
  Age: 48 Year
  Sex: Male
  Weight: 105.8 kg

DRUGS (5)
  1. VPRIV [Suspect]
     Active Substance: VELAGLUCERASE ALFA
     Indication: GAUCHER^S DISEASE
     Dosage: 6000 IU, 1X/2WKS
     Route: 041
     Dates: start: 20150302
  2. POTASSIUM OROTATE [Concomitant]
     Indication: PRODUCT USED FOR UNKNOWN INDICATION
     Dosage: 10 MEQ, 3X/DAY:TID
     Route: 048
  3. ASTEPRO [Concomitant]
     Active Substance: AZELASTINE HYDROCHLORIDE
     Indication: RHINITIS
     Dosage: 1 DF 0.15%, 2X/DAY:BID
     Route: 055
  4. FLUTICASONE [Concomitant]
     Active Substance: FLUTICASONE\FLUTICASONE PROPIONATE
     Indication: RHINITIS
     Dosage: 2 DF, 1X/DAY:QD, 2 SPRAYS
     Route: 055
  5. ALLOPURINOL. [Concomitant]
     Active Substance: ALLOPURINOL
     Indication: GOUT
     Dosage: 300 MG, UNKNOWN
     Route: 048

REACTIONS (5)
  - Headache [Recovering/Resolving]
  - Nervousness [Unknown]
  - Infusion related reaction [Recovering/Resolving]
  - Diarrhoea [Recovered/Resolved]
  - Feeling abnormal [Not Recovered/Not Resolved]

NARRATIVE: CASE EVENT DATE: 2015
